FAERS Safety Report 5512927-8 (Version None)
Quarter: 2007Q4

REPORT INFORMATION
  Report Type: 
  Country: None (occurrence: None)
  Receive Date: 20071112
  Receipt Date: 20071031
  Transmission Date: 20080405
  Serious: Yes (Life-Threatening, Hospitalization)
  Sender: FDA-Public Use
  Company Number: JP-ASTRAZENECA-2007SE06003

PATIENT
  Age: 44 Year
  Sex: Female

DRUGS (3)
  1. BLOPRESS TABLETS 4 [Suspect]
     Route: 048
  2. CONIEL [Suspect]
     Route: 048
  3. ARTIST [Suspect]
     Route: 048

REACTIONS (3)
  - BRADYCARDIA [None]
  - OVERDOSE [None]
  - SHOCK [None]
